FAERS Safety Report 4649195-5 (Version None)
Quarter: 2005Q2

REPORT INFORMATION
  Report Type: 
  Country: None (occurrence: None)
  Receive Date: 20050427
  Receipt Date: 20050414
  Transmission Date: 20051028
  Serious: Yes (Congenital Anomaly)
  Sender: FDA-Public Use
  Company Number: A0444063A

PATIENT
  Sex: 0

DRUGS (1)
  1. LAMICTAL [Suspect]
     Indication: BIPOLAR DISORDER
     Dosage: 12.5 MG/PER DAY/TRANSPLACENTARY
     Route: 064
     Dates: start: 20030101

REACTIONS (4)
  - DRUG EXPOSURE DURING PREGNANCY [None]
  - HYPOGLYCAEMIA NEONATAL [None]
  - RENAL AGENESIS [None]
  - SINGLE UMBILICAL ARTERY [None]
